FAERS Safety Report 8853092 (Version 1)
Quarter: 2012Q4

REPORT INFORMATION
  Report Type: 
  Country: US (occurrence: US)
  Receive Date: 20121022
  Receipt Date: 20121022
  Transmission Date: 20130627
  Serious: No
  Sender: FDA-Public Use
  Company Number: US-009507513-1210USA007498

PATIENT
  Sex: Male

DRUGS (2)
  1. CLARINEX [Suspect]
     Dosage: UNK
  2. PROTONIX [Concomitant]

REACTIONS (2)
  - Lethargy [Unknown]
  - Asthenia [Unknown]
